FAERS Safety Report 4998507-1 (Version None)
Quarter: 2006Q2

REPORT INFORMATION
  Report Type: 
  Country: None (occurrence: None)
  Receive Date: 20060508
  Receipt Date: 20060428
  Transmission Date: 20061013
  Serious: Yes (Hospitalization)
  Sender: FDA-Public Use
  Company Number: 2006-00915

PATIENT
  Age: 76 Year
  Sex: Female
  Weight: 65 kg

DRUGS (8)
  1. VELCADE [Suspect]
     Indication: MULTIPLE MYELOMA
     Dosage: SEE IMAGE
     Route: 042
     Dates: start: 20060221, end: 20060406
  2. VELCADE [Suspect]
     Indication: MULTIPLE MYELOMA
     Dosage: SEE IMAGE
     Route: 042
     Dates: start: 20060406
  3. NADOLOL [Concomitant]
  4. PRESTOLE (HYDROCHLOROTHIAZIDE, TRIAMTERENE) [Concomitant]
  5. VINBURNINE [Concomitant]
  6. RUTOSIDE [Concomitant]
  7. VALACYCLOVIR HCL [Concomitant]
  8. TRAMADOL HCL [Concomitant]

REACTIONS (29)
  - ANOREXIA [None]
  - ASTHENIA [None]
  - BODY TEMPERATURE INCREASED [None]
  - BUTTOCK PAIN [None]
  - COGNITIVE DISORDER [None]
  - CONSTIPATION [None]
  - DEHYDRATION [None]
  - DIFFICULTY IN WALKING [None]
  - DRY MOUTH [None]
  - DYSSTASIA [None]
  - FALL [None]
  - GENERAL PHYSICAL CONDITION ABNORMAL [None]
  - HAEMOGLOBIN DECREASED [None]
  - HYPONATRAEMIA [None]
  - INFLAMMATION [None]
  - LEUKOCYTOSIS [None]
  - LOGORRHOEA [None]
  - LOSS OF CONSCIOUSNESS [None]
  - LUNG DISORDER [None]
  - LUNG INFECTION [None]
  - MEMORY IMPAIRMENT [None]
  - PNEUMOCOCCAL BACTERAEMIA [None]
  - PRODUCTIVE COUGH [None]
  - PSYCHOMOTOR HYPERACTIVITY [None]
  - RALES [None]
  - RENAL FAILURE [None]
  - SPEECH DISORDER [None]
  - THROMBOCYTOPENIA [None]
  - URINARY RETENTION [None]
